FAERS Safety Report 8221189-2 (Version None)
Quarter: 2012Q1

REPORT INFORMATION
  Report Type: 
  Country: None (occurrence: None)
  Receive Date: 20120320
  Receipt Date: 20120312
  Transmission Date: 20120608
  Serious: Yes (Hospitalization, Other)
  Sender: FDA-Public Use
  Company Number: PHHY2012JP022867

PATIENT
  Age: 66 Year
  Sex: Male

DRUGS (12)
  1. ALLOPURINOL [Concomitant]
     Route: 048
  2. LYRICA [Concomitant]
     Dosage: 300 MG DAILY IN TWO DOSES PER DAY
     Route: 048
     Dates: start: 20120112
  3. AMLODIPINE BESYLATE [Concomitant]
     Route: 048
  4. ATENOLOL [Concomitant]
     Route: 048
  5. LYRICA [Concomitant]
     Dosage: 300 MG DAILY IN TWO DOSES PER DAY
     Route: 048
     Dates: start: 20120123
  6. ACETAMINOPHEN [Concomitant]
     Indication: PAIN
     Dosage: 600 MG, UNK
  7. TEGRETOL [Suspect]
     Dosage: 800 MG DAILY IN TWO DOSES PER DAY
     Dates: start: 20120112, end: 20120118
  8. VITAMEDIN CAPSULE [Concomitant]
     Route: 048
  9. LYRICA [Concomitant]
     Dosage: 300 MG DAILY IN TWO DOSES PER DAY
     Route: 048
  10. TEGRETOL [Suspect]
     Indication: NEURALGIA
     Dosage: 400 MG DAILY IN TWO DOSES PER DAY
     Dates: start: 20120105, end: 20120111
  11. LYRICA [Concomitant]
     Indication: NEURALGIA
     Dosage: 150 MG, DAILY IN TWO DOSES PER DAY
     Route: 048
     Dates: start: 20111215
  12. LYRICA [Concomitant]
     Dosage: 600 MG DAILY IN TWO DOSES PER DAY
     Route: 048

REACTIONS (5)
  - THROMBOCYTOPENIA [None]
  - PROSTATIC SPECIFIC ANTIGEN INCREASED [None]
  - BLOOD ALKALINE PHOSPHATASE INCREASED [None]
  - WHITE BLOOD CELL COUNT INCREASED [None]
  - RED BLOOD CELL COUNT INCREASED [None]
